FAERS Safety Report 11633667 (Version 3)
Quarter: 2018Q3

REPORT INFORMATION
  Report Type: Spontaneous
  Country: US (occurrence: US)
  Receive Date: 20151015
  Receipt Date: 20180926
  Transmission Date: 20181010
  Serious: Yes (Other)
  Sender: FDA-Public Use
  Company Number: PHEH2015US020281

PATIENT
  Sex: Female
  Weight: 68.3 kg

DRUGS (1)
  1. ENTRESTO [Suspect]
     Active Substance: SACUBITRIL\VALSARTAN
     Indication: PRODUCT USED FOR UNKNOWN INDICATION
     Dosage: 24/26MG, BID
     Route: 048
     Dates: start: 20150928, end: 20151005

REACTIONS (3)
  - Angioedema [Recovered/Resolved]
  - Swelling face [Unknown]
  - Lip swelling [Unknown]
